FAERS Safety Report 9853019 (Version 1)
Quarter: 2014Q1

REPORT INFORMATION
  Report Type: Spontaneous
  Country: AU (occurrence: None)
  Receive Date: 20140127
  Receipt Date: 20140127
  Transmission Date: 20141002
  Serious: Yes (Other)
  Sender: FDA-Public Use
  Company Number: 2013000435

PATIENT
  Age: 75 Year
  Sex: Female

DRUGS (3)
  1. ACEON (PERINDOPRIL ERBUMINE) TABLET [Suspect]
     Indication: PRODUCT USED FOR UNKNOWN INDICATION
  2. MELOXICAM (MELOXICAM) [Suspect]
     Indication: PRODUCT USED FOR UNKNOWN INDICATION
  3. PREMARIN (PREMARIN) [Concomitant]

REACTIONS (3)
  - Local swelling [None]
  - Therapy change [None]
  - Angioedema [None]
